FAERS Safety Report 9003580 (Version 1)
Quarter: 2013Q1

REPORT INFORMATION
  Report Type: Report from Study
  Country: US (occurrence: US)
  Receive Date: 20130108
  Receipt Date: 20130108
  Transmission Date: 20140127
  Serious: Yes (Hospitalization)
  Sender: FDA-Public Use
  Company Number: US-009507513-1301USA001786

PATIENT
  Sex: Male
  Weight: 79.1 kg

DRUGS (8)
  1. DEXAMETHASONE [Suspect]
     Dosage: UNK
     Dates: start: 20121203
  2. AVASTIN (BEVACIZUMAB) [Suspect]
     Indication: ANTI-GLOMERULAR BASEMENT MEMBRANE ANTIBODY
     Dosage: 10 MG/KG, Q2W
     Route: 042
     Dates: start: 20121120, end: 20121221
  3. AVASTIN (BEVACIZUMAB) [Suspect]
     Dosage: 10 MG/KG, Q2W
     Route: 042
     Dates: start: 20121221
  4. ACETAMINOPHEN [Concomitant]
     Dosage: UNK
     Dates: start: 2001
  5. SIMVASTATIN [Concomitant]
     Dosage: UNK
     Dates: start: 2001
  6. LOSARTAN POTASSIUM [Concomitant]
     Dosage: UNK
     Dates: start: 20101122
  7. LOVENOX [Concomitant]
     Dosage: UNK
     Dates: start: 20121221
  8. AMLODIPINE BESYLATE [Concomitant]
     Dosage: UNK
     Dates: start: 20121205

REACTIONS (3)
  - Mental status changes [Unknown]
  - Gait disturbance [Unknown]
  - Fall [Unknown]
